FAERS Safety Report 20386011 (Version 2)
Quarter: 2022Q1

REPORT INFORMATION
  Report Type: Report from Study
  Country: US (occurrence: US)
  Receive Date: 20220127
  Receipt Date: 20220210
  Transmission Date: 20220423
  Serious: Yes (Other)
  Sender: FDA-Public Use
  Company Number: US-TEVA-2022-US-2001125

PATIENT
  Age: 53 Year
  Sex: Male

DRUGS (3)
  1. CISPLATIN [Suspect]
     Active Substance: CISPLATIN
     Indication: Aesthesioneuroblastoma
     Dosage: RADIOTHERAPY CONCURRENTLY WITH CISPLATIN
     Route: 065
  2. CISPLATIN [Suspect]
     Active Substance: CISPLATIN
     Dosage: THREE CYCLES WITH ETOPOSIDE
     Route: 065
  3. ETOPOSIDE [Suspect]
     Active Substance: ETOPOSIDE
     Indication: Aesthesioneuroblastoma
     Dosage: THREE CYCLES
     Route: 065

REACTIONS (1)
  - Deafness unilateral [Unknown]
